FAERS Safety Report 6393721-5 (Version None)
Quarter: 2009Q4

REPORT INFORMATION
  Report Type: 
  Country: None (occurrence: None)
  Receive Date: 20091008
  Receipt Date: 20090929
  Transmission Date: 20100525
  Serious: Yes (Other)
  Sender: FDA-Public Use
  Company Number: JP-ROCHE-660176

PATIENT
  Age: 16 Year
  Sex: Male

DRUGS (6)
  1. RIBAVIRIN [Suspect]
     Indication: SUBACUTE SCLEROSING PANENCEPHALITIS
     Dosage: ROUTE: INTRAVENTRICULAR; FOR 5 CONSECUTIVE DAYS FOLLOWED BY A 9 DAYS BREAK
     Route: 050
  2. RIBAVIRIN [Suspect]
     Dosage: DOSE INCREASED
     Route: 050
  3. RIBAVIRIN [Suspect]
     Dosage: DOSE: 4.5 MG/KG/DAY
     Route: 050
  4. RIBAVIRIN [Suspect]
     Dosage: DOSE DECREASED
     Route: 050
  5. INTERFERON ALFA [Suspect]
     Indication: SUBACUTE SCLEROSING PANENCEPHALITIS
     Dosage: ROUTE: INTRAVENTRICULAR
     Route: 050
  6. INOSINE PRANOBEX [Suspect]
     Indication: SUBACUTE SCLEROSING PANENCEPHALITIS
     Route: 048

REACTIONS (4)
  - DRUG INEFFECTIVE [None]
  - HEPATIC FUNCTION ABNORMAL [None]
  - NEUROLOGICAL DECOMPENSATION [None]
  - SHUNT MALFUNCTION [None]
